FAERS Safety Report 23919439 (Version 1)
Quarter: 2024Q2

REPORT INFORMATION
  Report Type: Spontaneous
  Country: DE (occurrence: DE)
  Receive Date: 20240530
  Receipt Date: 20240530
  Transmission Date: 20240716
  Serious: Yes (Other)
  Sender: FDA-Public Use
  Company Number: DE-002147023-NVSC2024DE112310

PATIENT
  Age: 37 Year
  Sex: Male

DRUGS (2)
  1. COSENTYX [Suspect]
     Active Substance: SECUKINUMAB
     Indication: Hidradenitis
     Dosage: 150 MG X2
     Route: 065
     Dates: start: 20240417, end: 20240417
  2. COSENTYX [Suspect]
     Active Substance: SECUKINUMAB
     Dosage: 300 MG X1
     Route: 065
     Dates: start: 202404

REACTIONS (14)
  - Loss of consciousness [Unknown]
  - Vision blurred [Recovering/Resolving]
  - Malaise [Recovered/Resolved]
  - Hypotension [Recovering/Resolving]
  - Abdominal pain upper [Recovering/Resolving]
  - Nausea [Recovering/Resolving]
  - Diarrhoea [Recovering/Resolving]
  - Dizziness [Recovered/Resolved]
  - Dizziness [Recovering/Resolving]
  - Palpitations [Recovered/Resolved]
  - Palpitations [Recovering/Resolving]
  - Photosensitivity reaction [Recovering/Resolving]
  - Photosensitivity reaction [Recovered/Resolved]
  - Condition aggravated [Unknown]

NARRATIVE: CASE EVENT DATE: 20240401
